FAERS Safety Report 9816335 (Version 1)
Quarter: 2014Q1

REPORT INFORMATION
  Report Type: Report from Study
  Country: US (occurrence: US)
  Receive Date: 20140114
  Receipt Date: 20140114
  Transmission Date: 20141002
  Serious: Yes (Other)
  Sender: FDA-Public Use
  Company Number: US-US-EMD SERONO, INC.-7261890

PATIENT
  Sex: Female

DRUGS (1)
  1. REBIF [Suspect]
     Indication: PRODUCT USED FOR UNKNOWN INDICATION
     Route: 058
     Dates: start: 20130501, end: 201311

REACTIONS (4)
  - Pneumonia [Recovered/Resolved]
  - Immune system disorder [Unknown]
  - Renal function test abnormal [Unknown]
  - Hepatic enzyme abnormal [Unknown]
